FAERS Safety Report 7640902-6 (Version None)
Quarter: 2011Q3

REPORT INFORMATION
  Report Type: 
  Country: None (occurrence: None)
  Receive Date: 20110728
  Receipt Date: 20110728
  Transmission Date: 20111222
  Serious: No
  Sender: FDA-Public Use
  Company Number: None

PATIENT
  Age: 21 Year
  Sex: Male
  Weight: 90.718 kg

DRUGS (4)
  1. MULTI-VITAMIN [Concomitant]
  2. MAGNESIUM VITAMIN [Concomitant]
  3. FINASTERIDE [Suspect]
     Indication: ALOPECIA
     Dosage: 1.25MG
     Route: 048
     Dates: start: 20100101, end: 20110415
  4. ZINC [Concomitant]

REACTIONS (6)
  - ALCOHOL USE [None]
  - LIBIDO DECREASED [None]
  - PROSTATITIS [None]
  - ORGANIC ERECTILE DYSFUNCTION [None]
  - EJACULATION DISORDER [None]
  - ERECTILE DYSFUNCTION [None]
